FAERS Safety Report 16816922 (Version 1)
Quarter: 2019Q3

REPORT INFORMATION
  Report Type: Spontaneous
  Country: US (occurrence: US)
  Receive Date: 20190726
  Receipt Date: 20190726
  Transmission Date: 20191005
  Serious: No
  Sender: FDA-Public Use
  Company Number: None

PATIENT
  Sex: Female

DRUGS (1)
  1. CAPECITABINE         500MG [Suspect]
     Active Substance: CAPECITABINE
     Indication: BREAST CANCER
     Dosage: FREQUENCY 7 DAYS AND THEN OFF 7 DAYS.
     Route: 048
     Dates: start: 20180425

REACTIONS (2)
  - Haemorrhage [None]
  - Skin exfoliation [None]
